FAERS Safety Report 7618855-6 (Version None)
Quarter: 2011Q3

REPORT INFORMATION
  Report Type: 
  Country: None (occurrence: None)
  Receive Date: 20110718
  Receipt Date: 20110714
  Transmission Date: 20111222
  Serious: Yes (Death, Other)
  Sender: FDA-Public Use
  Company Number: US-AMGEN-USASP2011036056

PATIENT
  Age: 78 Year
  Sex: Female

DRUGS (1)
  1. NPLATE [Suspect]
     Indication: IDIOPATHIC THROMBOCYTOPENIC PURPURA
     Dosage: 63.6 A?G, UNK
     Dates: start: 20101103, end: 20101118

REACTIONS (2)
  - DEATH [None]
  - PLATELET COUNT INCREASED [None]
